FAERS Safety Report 24753600 (Version 1)
Quarter: 2024Q4

REPORT INFORMATION
  Report Type: Spontaneous
  Country: GB (occurrence: GB)
  Receive Date: 20241219
  Receipt Date: 20241219
  Transmission Date: 20250115
  Serious: Yes (Disabling, Other)
  Sender: MYLAN
  Company Number: None

PATIENT
  Age: 55 Year
  Sex: Female
  Weight: 79 kg

DRUGS (2)
  1. DOXYCYCLINE [Suspect]
     Active Substance: DOXYCYCLINE
     Indication: Pharyngitis
     Dosage: 100 MILLIGRAM, BID (100MG X 2 ON FIRST DAY. THEN ONCE A DAY FOR 4 DAYS. DAYS)
     Route: 065
     Dates: start: 20241126, end: 202411
  2. DOXYCYCLINE [Suspect]
     Active Substance: DOXYCYCLINE
     Dosage: 100 MILLIGRAM, QD  (100MG X 2 ON FIRST DAY. THEN ONCE A DAY FOR 4 DAYS. DAYS)
     Route: 065
     Dates: start: 202411, end: 20241130

REACTIONS (4)
  - Suicidal ideation [Unknown]
  - Fear [Unknown]
  - Dissociation [Unknown]
  - Anxiety [Recovering/Resolving]

NARRATIVE: CASE EVENT DATE: 20241201
